FAERS Safety Report 4637683-7 (Version None)
Quarter: 2005Q2

REPORT INFORMATION
  Report Type: 
  Country: None (occurrence: None)
  Receive Date: 20050328
  Receipt Date: 20041213
  Transmission Date: 20051028
  Serious: No
  Sender: FDA-Public Use
  Company Number: USA041285980

PATIENT
  Age: 52 Year
  Sex: Female
  Weight: 56 kg

DRUGS (2)
  1. STRATTERA [Suspect]
     Indication: ATTENTION DEFICIT/HYPERACTIVITY DISORDER
     Dosage: 40 MG DAY
     Dates: start: 20041207
  2. NEURONTIN (GABAPENTIN PFIZER) [Concomitant]

REACTIONS (6)
  - DIZZINESS [None]
  - DYSPNOEA [None]
  - FEELING HOT [None]
  - INSOMNIA [None]
  - PALPITATIONS [None]
  - PRURITUS [None]
